FAERS Safety Report 26066147 (Version 2)
Quarter: 2025Q4

REPORT INFORMATION
  Report Type: Spontaneous
  Country: CH (occurrence: CH)
  Receive Date: 20251119
  Receipt Date: 20251205
  Transmission Date: 20260118
  Serious: Yes (Other)
  Sender: TEVA
  Company Number: CH-TEVA-VS-3393392

PATIENT
  Age: 81 Year
  Sex: Male

DRUGS (1)
  1. ALENDRONATE SODIUM [Suspect]
     Active Substance: ALENDRONATE SODIUM
     Indication: Osteoporosis
     Dosage: FOR OVER A YEAR
     Route: 048

REACTIONS (5)
  - Osteonecrosis [Unknown]
  - C-reactive protein increased [Unknown]
  - Endodontic procedure [Unknown]
  - Osteomyelitis [Unknown]
  - Toothache [Unknown]

NARRATIVE: CASE EVENT DATE: 20250101
